FAERS Safety Report 8997965 (Version 1)
Quarter: 2013Q1

REPORT INFORMATION
  Report Type: Spontaneous
  Country: US (occurrence: US)
  Receive Date: 20130104
  Receipt Date: 20130104
  Transmission Date: 20140127
  Serious: Yes (Other)
  Sender: FDA-Public Use
  Company Number: CHPA2012US025882

PATIENT
  Sex: Female

DRUGS (2)
  1. TRANSDERM SCOP [Suspect]
     Indication: PROPHYLAXIS OF NAUSEA AND VOMITING
     Dosage: 1 PATCH FOR 2 DAYS, 1 PATCH FOR 2 HOURS
     Route: 062
     Dates: start: 20121213, end: 20121215
  2. ANALGESICS [Suspect]
     Indication: PAIN
     Dosage: UNK, UNK

REACTIONS (6)
  - Endometriosis [Unknown]
  - Hallucination [Recovered/Resolved]
  - Feeling abnormal [Recovered/Resolved]
  - Vision blurred [Recovered/Resolved]
  - Mydriasis [Not Recovered/Not Resolved]
  - Wrong technique in drug usage process [Unknown]
